FAERS Safety Report 17227050 (Version 1)
Quarter: 2020Q1

REPORT INFORMATION
  Report Type: Spontaneous
  Country: US (occurrence: US)
  Receive Date: 20200103
  Receipt Date: 20200103
  Transmission Date: 20200409
  Serious: No
  Sender: FDA-Public Use
  Company Number: US-CELGENEUS-USA-20191210067

PATIENT
  Sex: Female
  Weight: 83.54 kg

DRUGS (8)
  1. THALOMID [Suspect]
     Active Substance: THALIDOMIDE
     Indication: PLASMA CELL MYELOMA
     Dosage: 400 MILLIGRAM
     Route: 048
     Dates: start: 200301
  2. TRESIBA [Concomitant]
     Active Substance: INSULIN DEGLUDEC
     Indication: PRODUCT USED FOR UNKNOWN INDICATION
     Route: 065
  3. THALOMID [Suspect]
     Active Substance: THALIDOMIDE
     Dosage: 800 MG - 400 MG
     Route: 048
     Dates: start: 201401
  4. THALOMID [Suspect]
     Active Substance: THALIDOMIDE
     Dosage: 200 MG - 400 MG
     Route: 048
     Dates: start: 201410
  5. NEURONTIN [Concomitant]
     Active Substance: GABAPENTIN
     Indication: PRODUCT USED FOR UNKNOWN INDICATION
     Route: 065
  6. THALOMID [Suspect]
     Active Substance: THALIDOMIDE
     Dosage: 400 MILLIGRAM
     Route: 048
     Dates: start: 201912
  7. THALOMID [Suspect]
     Active Substance: THALIDOMIDE
     Dosage: 200 MG - 400 MG
     Route: 048
     Dates: start: 200802
  8. THALOMID [Suspect]
     Active Substance: THALIDOMIDE
     Dosage: 200 MILLIGRAM
     Route: 048
     Dates: start: 201911

REACTIONS (3)
  - Insomnia [Unknown]
  - Palpitations [Unknown]
  - Product dose omission [Unknown]
